FAERS Safety Report 6133437-3 (Version None)
Quarter: 2009Q1

REPORT INFORMATION
  Report Type: 
  Country: None (occurrence: None)
  Receive Date: 20090326
  Receipt Date: 20090326
  Transmission Date: 20090719
  Serious: Yes (Hospitalization)
  Sender: FDA-Public Use
  Company Number: PHHO2003AU08996

PATIENT
  Sex: Female
  Weight: 85 kg

DRUGS (8)
  1. CGS 20267 T30748+ [Suspect]
     Indication: BREAST CANCER
     Dosage: 2.5 MG, QD
     Route: 048
     Dates: start: 20011009
  2. PAROXETINE HCL [Concomitant]
     Indication: DEPRESSION
  3. THYROXIN [Concomitant]
     Indication: HYPOTHYROIDISM
  4. LIPITOR [Concomitant]
  5. CELEBREX [Concomitant]
     Indication: ARTHRALGIA
  6. ASPIRIN [Concomitant]
     Indication: PROPHYLAXIS
  7. INDERAL [Concomitant]
  8. DIAZEPAM [Concomitant]
     Indication: DEPRESSION

REACTIONS (6)
  - BACK PAIN [None]
  - BLADDER DISTENSION [None]
  - HAEMATURIA [None]
  - HYDRONEPHROSIS [None]
  - NEPHROLITHIASIS [None]
  - TENDERNESS [None]
